FAERS Safety Report 7359645-1 (Version None)
Quarter: 2011Q1

REPORT INFORMATION
  Report Type: 
  Country: None (occurrence: None)
  Receive Date: 20110317
  Receipt Date: 20110315
  Transmission Date: 20110831
  Serious: Yes (Hospitalization, Other)
  Sender: FDA-Public Use
  Company Number: JP-PFIZER INC-2011046332

PATIENT
  Age: 75 Year
  Sex: Female

DRUGS (7)
  1. NORTRIPTYLINE HCL [Concomitant]
     Dosage: 25 MG, 1X/DAY
     Route: 048
     Dates: start: 20100817, end: 20101025
  2. NORTRIPTYLINE HCL [Concomitant]
     Dosage: 10 MG, 1X/DAY
     Route: 048
     Dates: start: 20101228, end: 20110111
  3. NORTRIPTYLINE HCL [Concomitant]
     Dosage: 20 MG, 1X/DAY
     Route: 048
     Dates: start: 20110112
  4. NORTRIPTYLINE HCL [Concomitant]
     Dosage: 10 MG, 1X/DAY
     Route: 048
     Dates: start: 20100629, end: 20100726
  5. LYRICA [Suspect]
     Indication: PAIN
     Dosage: 75 MG, DAILY
     Route: 048
     Dates: start: 20110215, end: 20110218
  6. NORTRIPTYLINE HCL [Concomitant]
     Dosage: 20 MG, 1X/DAY
     Route: 048
     Dates: start: 20100727, end: 20100816
  7. MYSLEE [Concomitant]
     Dosage: 10 MG, 1X/DAY
     Route: 048

REACTIONS (5)
  - ABNORMAL BEHAVIOUR [None]
  - FALL [None]
  - HALLUCINATION [None]
  - DEMENTIA [None]
  - SPEECH DISORDER [None]
